FAERS Safety Report 4720800-8 (Version None)
Quarter: 2005Q3

REPORT INFORMATION
  Report Type: 
  Country: None (occurrence: None)
  Receive Date: 20050721
  Receipt Date: 20011120
  Transmission Date: 20060218
  Serious: Yes (Hospitalization)
  Sender: FDA-Public Use
  Company Number: JP-ABBOTT-01P-087-0113181-00

PATIENT
  Sex: Male

DRUGS (11)
  1. NORVIR [Suspect]
     Indication: HIV INFECTION
     Route: 048
     Dates: start: 19991102, end: 20040331
  2. NORVIR [Suspect]
     Route: 048
     Dates: start: 20040401, end: 20040707
  3. NORVIR [Suspect]
     Route: 048
     Dates: start: 20040708
  4. ABACAVIR SULFATE [Suspect]
     Indication: HIV INFECTION
     Route: 048
     Dates: start: 19991102
  5. INDINAVIR [Suspect]
     Indication: HIV INFECTION
     Route: 048
     Dates: start: 19991102, end: 20040707
  6. EFAVIRENZ [Suspect]
     Indication: HIV INFECTION
     Route: 048
     Dates: start: 19991102
  7. PENTAMIDINE ISETHIONATE [Concomitant]
     Indication: INFECTION PROPHYLAXIS
     Dates: start: 19991102, end: 20010417
  8. ISONIAZID [Concomitant]
     Indication: PULMONARY TUBERCULOSIS
     Dates: start: 20001213, end: 20020527
  9. ETHAMBUTOL DIHYDROCHLORIDE [Concomitant]
     Indication: PULMONARY TUBERCULOSIS
     Dates: start: 20001213, end: 20020527
  10. LEVOFLOXACIN [Concomitant]
     Indication: PULMONARY TUBERCULOSIS
     Dates: start: 20001213, end: 20020527
  11. ATAZANAVIR [Concomitant]
     Indication: HIV INFECTION
     Route: 048
     Dates: start: 20040708

REACTIONS (3)
  - GYNAECOMASTIA [None]
  - HYPERLIPIDAEMIA [None]
  - PULMONARY TUBERCULOSIS [None]
